FAERS Safety Report 15037117 (Version 4)
Quarter: 2019Q4

REPORT INFORMATION
  Report Type: Report from Study
  Country: CA (occurrence: CA)
  Receive Date: 20180620
  Receipt Date: 20191104
  Transmission Date: 20200122
  Serious: Yes (Hospitalization, Other)
  Sender: FDA-Public Use
  Company Number: CA-SA-2016SA223745

PATIENT
  Age: 72 Year
  Sex: Female
  Weight: 59 kg

DRUGS (13)
  1. VANDETANIB. [Suspect]
     Active Substance: VANDETANIB
     Dosage: 100 MG,QD
     Route: 048
     Dates: start: 2018
  2. CORTEF [Concomitant]
     Active Substance: HYDROCORTISONE
     Dosage: 10 MG,BID
     Route: 065
  3. CORTEF [Concomitant]
     Active Substance: HYDROCORTISONE
     Dosage: UNK
  4. VANDETANIB. [Suspect]
     Active Substance: VANDETANIB
     Indication: MEDULLARY THYROID CANCER
     Dosage: 100 MG,QD
     Route: 048
     Dates: start: 20070901, end: 201801
  5. FLORINEF ACETATE [Concomitant]
     Active Substance: FLUDROCORTISONE ACETATE
     Dosage: .5 DF,UNK
     Route: 065
  6. CALCIUM [Concomitant]
     Active Substance: CALCIUM
     Dosage: 500 MG,BID
     Route: 065
  7. SPASMINE [CRATAEGUS SPP. FLOWER POWDER;VALERIANA OFFICINALIS ROOT DRY EXTRACT] [Suspect]
     Active Substance: HAWTHORN LEAF WITH FLOWER\VALERIAN
     Dosage: UNK UNK,UNK
     Route: 065
  8. SYNTHROID [Concomitant]
     Active Substance: LEVOTHYROXINE SODIUM
     Dosage: .112 MG,QD
     Route: 065
  9. SMECTA [Concomitant]
     Active Substance: MONTMORILLONITE
     Dosage: UNK UNK,PRN
     Route: 065
  10. RAMIPRIL. [Concomitant]
     Active Substance: RAMIPRIL
     Dosage: 5 MG,QD
     Route: 065
  11. MAGNESIUM [Concomitant]
     Active Substance: MAGNESIUM
     Dosage: 100 MG,PRN
     Route: 065
  12. ONEALFA [Concomitant]
     Active Substance: ALFACALCIDOL
     Dosage: .25 UG,QD
     Route: 065
  13. MAGNESIUM [Concomitant]
     Active Substance: MAGNESIUM
     Dosage: 500 MG, UNK

REACTIONS (32)
  - Cardiac disorder [Recovered/Resolved]
  - Electrocardiogram QT prolonged [Recovered/Resolved]
  - Osteoarthritis [Recovered/Resolved]
  - Ear infection [Recovered/Resolved]
  - Oropharyngeal pain [Recovered/Resolved]
  - Nasopharyngitis [Recovered/Resolved]
  - Clumsiness [Not Recovered/Not Resolved]
  - Dyspnoea [Recovered/Resolved]
  - Hypoacusis [Recovered/Resolved]
  - Abdominal discomfort [Recovered/Resolved]
  - Respiratory disorder [Unknown]
  - Vertigo [Recovered/Resolved]
  - Fatigue [Recovered/Resolved]
  - Arthralgia [Recovered/Resolved]
  - Amnesia [Recovering/Resolving]
  - Arthralgia [Not Recovered/Not Resolved]
  - Rhinitis [Recovered/Resolved]
  - Nausea [Recovered/Resolved]
  - Hip fracture [Recovered/Resolved]
  - Fall [Unknown]
  - Pyrexia [Recovered/Resolved]
  - Tinnitus [Recovered/Resolved]
  - Weight increased [Unknown]
  - Pain in extremity [Unknown]
  - Excessive cerumen production [Recovered/Resolved]
  - Constipation [Unknown]
  - Condition aggravated [Recovered/Resolved]
  - Enzyme activity increased [Unknown]
  - Blood magnesium decreased [Recovered/Resolved]
  - Frequent bowel movements [Recovered/Resolved]
  - Pain in extremity [Not Recovered/Not Resolved]
  - Diarrhoea [Recovered/Resolved]

NARRATIVE: CASE EVENT DATE: 2013
